FAERS Safety Report 10863864 (Version 1)
Quarter: 2015Q1

REPORT INFORMATION
  Report Type: Other
  Country: FR (occurrence: FR)
  Receive Date: 20150223
  Receipt Date: 20150223
  Transmission Date: 20150721
  Serious: Yes (Hospitalization)
  Sender: FDA-Public Use
  Company Number: FR-MYLANLABS-2015M1005285

PATIENT

DRUGS (14)
  1. FONDAPARINUX [Suspect]
     Active Substance: FONDAPARINUX
     Indication: PROPHYLAXIS
     Dosage: UNK
     Route: 058
     Dates: start: 20150109, end: 20150111
  2. ZOVIRAX [Suspect]
     Active Substance: ACYCLOVIR
     Indication: ENCEPHALITIS
     Dosage: 1 G, TID
     Route: 042
     Dates: start: 20150109, end: 20150113
  3. RIVOTRIL [Concomitant]
     Active Substance: CLONAZEPAM
     Indication: NEURALGIA
     Dosage: UNK
     Dates: start: 20150102, end: 20150109
  4. ALPRAZOLAM. [Suspect]
     Active Substance: ALPRAZOLAM
     Indication: ANXIETY
     Dosage: UNK
     Route: 048
     Dates: start: 20150110
  5. AMOXICILLINE PANPHARMA [Suspect]
     Active Substance: AMOXICILLIN
     Dosage: 4 G, TID
     Route: 042
     Dates: start: 20150112, end: 20150115
  6. IPRATROPIUM ARROW [Suspect]
     Active Substance: IPRATROPIUM
     Indication: ACUTE PULMONARY OEDEMA
     Dosage: UNK
     Route: 055
     Dates: start: 20150111, end: 20150112
  7. CEFTRIAXONE. [Concomitant]
     Active Substance: CEFTRIAXONE
     Indication: ENCEPHALITIS
     Dosage: UNK
     Route: 048
     Dates: start: 20150109, end: 20150115
  8. FUROSEMIDE RENAUDIN [Suspect]
     Active Substance: FUROSEMIDE
     Indication: ACUTE PULMONARY OEDEMA
     Dosage: 80 MG, QD
     Route: 040
     Dates: start: 20150110, end: 20150111
  9. BRICANYL [Suspect]
     Active Substance: TERBUTALINE SULFATE
     Indication: ACUTE PULMONARY OEDEMA
     Dosage: UNK
     Route: 055
     Dates: start: 20150110, end: 20150112
  10. TEGRETOL [Concomitant]
     Active Substance: CARBAMAZEPINE
  11. KARDEGIC [Concomitant]
     Active Substance: ASPIRIN LYSINE
  12. AMOXICILLINE PANPHARMA [Suspect]
     Active Substance: AMOXICILLIN
     Indication: ENCEPHALITIS
     Dosage: 4 G, QID
     Route: 042
     Dates: start: 20150109, end: 20150111
  13. ZESTORETIC [Concomitant]
     Active Substance: HYDROCHLOROTHIAZIDE\LISINOPRIL
     Dosage: UNK
     Route: 048
     Dates: end: 20150115
  14. SODIUM CHLORIDE. [Concomitant]
     Active Substance: SODIUM CHLORIDE
     Indication: FLUID REPLACEMENT
     Dosage: 3 L, QD
     Route: 042
     Dates: start: 201501, end: 201501

REACTIONS (1)
  - Hypokalaemia [Unknown]

NARRATIVE: CASE EVENT DATE: 20150111
